FAERS Safety Report 4712676-X (Version None)
Quarter: 2005Q3

REPORT INFORMATION
  Report Type: 
  Country: None (occurrence: None)
  Receive Date: 20050708
  Receipt Date: 20050113
  Transmission Date: 20060218
  Serious: Yes (Life-Threatening, Hospitalization, Other)
  Sender: FDA-Public Use
  Company Number: US-2004-035785

PATIENT
  Age: 68 Year
  Sex: Female
  Weight: 57.1 kg

DRUGS (8)
  1. ULTRAVIST 300 [Suspect]
     Indication: COMPUTERISED TOMOGRAM
     Dosage: 150 ML, 1 DOSE, INTRAVENOUS
     Route: 042
     Dates: start: 20040811, end: 20040811
  2. ULTRAVIST 300 [Suspect]
     Indication: COMPUTERISED TOMOGRAM ABDOMEN
     Dosage: 150 ML, 1 DOSE, INTRAVENOUS
     Route: 042
     Dates: start: 20040811, end: 20040811
  3. TEQUIN [Concomitant]
  4. METRONIDAZOLE [Concomitant]
  5. LIPITOR [Concomitant]
  6. VIOXX [Concomitant]
  7. TYLENOL [Concomitant]
  8. PHENOBARBITAL TAB [Concomitant]

REACTIONS (10)
  - ANAPHYLACTIC REACTION [None]
  - ANXIETY [None]
  - COUGH [None]
  - DYSPNOEA [None]
  - HYPOTENSION [None]
  - OROPHARYNGEAL SWELLING [None]
  - SWELLING FACE [None]
  - TACHYCARDIA [None]
  - URTICARIA GENERALISED [None]
  - VENTRICULAR EXTRASYSTOLES [None]
